FAERS Safety Report 8433430-1 (Version None)
Quarter: 2012Q2

REPORT INFORMATION
  Report Type: 
  Country: None (occurrence: None)
  Receive Date: 20120613
  Receipt Date: 20120522
  Transmission Date: 20120825
  Serious: Yes (Hospitalization)
  Sender: FDA-Public Use
  Company Number: JP-JNJFOC-20120603469

PATIENT
  Sex: Female
  Weight: 53 kg

DRUGS (6)
  1. RIMATIL [Concomitant]
     Route: 048
  2. PREDNISOLONE [Concomitant]
     Route: 065
  3. REMICADE [Suspect]
     Route: 042
     Dates: start: 20081217
  4. METHOTREXATE [Suspect]
     Indication: RHEUMATOID ARTHRITIS
     Route: 048
     Dates: end: 20101004
  5. REMICADE [Suspect]
     Dosage: 14TH DOSE
     Route: 042
     Dates: start: 20100830
  6. REMICADE [Suspect]
     Indication: RHEUMATOID ARTHRITIS
     Route: 042

REACTIONS (1)
  - PNEUMOCYSTIS JIROVECI PNEUMONIA [None]
